FAERS Safety Report 8312369-6 (Version None)
Quarter: 2012Q2

REPORT INFORMATION
  Report Type: 
  Country: None (occurrence: None)
  Receive Date: 20120425
  Receipt Date: 20120419
  Transmission Date: 20120825
  Serious: Yes (Congenital Anomaly, Other)
  Sender: FDA-Public Use
  Company Number: US-AMGEN-USASP2011070028

PATIENT
  Sex: Male
  Weight: 4.422 kg

DRUGS (5)
  1. ENBREL [Suspect]
     Dosage: 50 MG, QWK
     Route: 064
     Dates: start: 20080501, end: 20110603
  2. PRENATAL VITAMINS                  /01549301/ [Concomitant]
     Dosage: UNK UNK, PRN
  3. FOLIC [Concomitant]
     Dosage: UNK UNK, PRN
  4. ENBREL [Suspect]
     Dosage: 50 MG, QWK
     Route: 064
     Dates: end: 20111228
  5. ENBREL [Suspect]
     Dosage: 50 MG, QWK
     Dates: start: 20120306

REACTIONS (7)
  - HYDROCELE [None]
  - RENAL APLASIA [None]
  - GASTROOESOPHAGEAL REFLUX DISEASE [None]
  - BLOOD POTASSIUM INCREASED [None]
  - INFANTILE COLIC [None]
  - FOETAL EXPOSURE DURING PREGNANCY [None]
  - BLOOD CALCIUM INCREASED [None]
